FAERS Safety Report 7413120-4 (Version None)
Quarter: 2011Q2

REPORT INFORMATION
  Report Type: 
  Country: None (occurrence: None)
  Receive Date: 20110413
  Receipt Date: 20110329
  Transmission Date: 20111010
  Serious: No
  Sender: FDA-Public Use
  Company Number: US-B.I. PHARMACEUTICALS,INC./RIDGEFIELD-2011-BP-09708BP

PATIENT
  Sex: Male

DRUGS (6)
  1. ALLIPURINOL [Concomitant]
     Indication: GOUT
     Dates: start: 19990101
  2. PRADAXA [Suspect]
     Indication: ATRIAL FIBRILLATION
     Dosage: 300 MG
     Route: 048
     Dates: start: 20110328
  3. COLCHICINE [Concomitant]
     Indication: GOUT
     Dates: start: 19990101
  4. INDOMETHACINE [Concomitant]
     Indication: GOUT
     Dates: start: 19990101
  5. LIPITOR [Concomitant]
     Indication: BLOOD CHOLESTEROL INCREASED
     Dates: start: 20060101
  6. DIOVAN [Concomitant]
     Indication: HYPERTENSION
     Dosage: 160/12.5MG
     Dates: start: 20100301

REACTIONS (1)
  - GOUT [None]
